FAERS Safety Report 17017649 (Version 1)
Quarter: 2019Q4

REPORT INFORMATION
  Report Type: Spontaneous
  Country: ES (occurrence: ES)
  Receive Date: 20191111
  Receipt Date: 20191111
  Transmission Date: 20200122
  Serious: Yes (Hospitalization)
  Sender: FDA-Public Use
  Company Number: ES-ASTRAZENECA-2019SF58096

PATIENT
  Age: 52 Year
  Sex: Male

DRUGS (6)
  1. LORMETAZEPAM (88A) [Concomitant]
     Active Substance: LORMETAZEPAM
  2. IMIGRAN [Concomitant]
     Active Substance: SUMATRIPTAN SUCCINATE
  3. QUETIAPINE (1136A) [Suspect]
     Active Substance: QUETIAPINE
     Route: 048
     Dates: start: 201703, end: 20180715
  4. AMITRIPTYLINE (395A) [Interacting]
     Active Substance: AMITRIPTYLINE
     Route: 065
     Dates: start: 201703, end: 20180702
  5. TOPAMAX [Concomitant]
     Active Substance: TOPIRAMATE
  6. VENLAFAXINE (2664A) [Interacting]
     Active Substance: VENLAFAXINE HYDROCHLORIDE
     Route: 065
     Dates: start: 201703, end: 20180702

REACTIONS (3)
  - Rhabdomyolysis [Recovered/Resolved]
  - Serotonin syndrome [Recovered/Resolved]
  - Hyperthermia [Recovered/Resolved]

NARRATIVE: CASE EVENT DATE: 20180629
